FAERS Safety Report 24676209 (Version 1)
Quarter: 2024Q4

REPORT INFORMATION
  Report Type: Spontaneous
  Country: US (occurrence: US)
  Receive Date: 20241128
  Receipt Date: 20241128
  Transmission Date: 20250115
  Serious: No
  Sender: SANOFI AVENTIS
  Company Number: US-SANOFI-02309912

PATIENT
  Age: 66 Year
  Sex: Male

DRUGS (1)
  1. SOLIQUA 100/33 [Suspect]
     Active Substance: INSULIN GLARGINE\LIXISENATIDE
     Dosage: 30 U QD
     Dates: start: 20240829

REACTIONS (3)
  - Shoulder deformity [Not Recovered/Not Resolved]
  - Ligament sprain [Unknown]
  - Hypotension [Unknown]
